FAERS Safety Report 23708881 (Version 1)
Quarter: 2024Q2

REPORT INFORMATION
  Report Type: Spontaneous
  Country: US (occurrence: US)
  Receive Date: 20240404
  Receipt Date: 20240404
  Transmission Date: 20240715
  Serious: No
  Sender: FDA-Public Use
  Company Number: US-TG THERAPEUTICS INC.-TGT003379

PATIENT
  Age: 37 Year
  Sex: Female
  Weight: 63.492 kg

DRUGS (3)
  1. BRIUMVI [Suspect]
     Active Substance: UBLITUXIMAB-XIIY
     Indication: Multiple sclerosis
     Dosage: 150 MILLIGRAM
     Route: 042
     Dates: start: 20230508, end: 20230508
  2. BRIUMVI [Suspect]
     Active Substance: UBLITUXIMAB-XIIY
     Dosage: UNK
     Route: 042
  3. BRIUMVI [Suspect]
     Active Substance: UBLITUXIMAB-XIIY
     Dosage: 450 MILLIGRAM
     Route: 042
     Dates: start: 20231023, end: 20231023

REACTIONS (2)
  - Asthenia [Unknown]
  - Fatigue [Unknown]

NARRATIVE: CASE EVENT DATE: 20240201
